FAERS Safety Report 7177655-4 (Version None)
Quarter: 2010Q4

REPORT INFORMATION
  Report Type: 
  Country: None (occurrence: None)
  Receive Date: 20101220
  Receipt Date: 20090701
  Transmission Date: 20110411
  Serious: No
  Sender: FDA-Public Use
  Company Number: 2009BI020312

PATIENT
  Sex: Female

DRUGS (3)
  1. TYSABRI [Suspect]
     Indication: MULTIPLE SCLEROSIS
     Route: 042
     Dates: start: 20090527
  2. CLARITIN [Concomitant]
     Indication: PREMEDICATION
  3. TYLENOL (CAPLET) [Concomitant]
     Indication: PREMEDICATION

REACTIONS (4)
  - CATHETER SITE HAEMATOMA [None]
  - FATIGUE [None]
  - HEADACHE [None]
  - NAUSEA [None]
